FAERS Safety Report 5914932-6 (Version None)
Quarter: 2008Q4

REPORT INFORMATION
  Report Type: 
  Country: None (occurrence: None)
  Receive Date: 20081008
  Receipt Date: 20081001
  Transmission Date: 20090506
  Serious: No
  Sender: FDA-Public Use
  Company Number: 08H-163-0314993-00

PATIENT
  Age: 45 Year
  Sex: Male

DRUGS (3)
  1. PRECEDEX [Suspect]
     Indication: SEDATIVE THERAPY
     Dosage: INTRAVENOUS
     Route: 042
     Dates: start: 20080901, end: 20080901
  2. ATIVAN [Concomitant]
  3. HALDOL SOLUTAB [Concomitant]

REACTIONS (1)
  - ANGIOEDEMA [None]
